APPROVED DRUG PRODUCT: SOMOPHYLLIN-CRT
Active Ingredient: THEOPHYLLINE
Strength: 50MG
Dosage Form/Route: CAPSULE, EXTENDED RELEASE;ORAL
Application: A087763 | Product #001
Applicant: DM GRAHAM LABORATORIES INC
Approved: Feb 27, 1985 | RLD: No | RS: No | Type: DISCN